FAERS Safety Report 5399381-4 (Version None)
Quarter: 2007Q3

REPORT INFORMATION
  Report Type: 
  Country: None (occurrence: None)
  Receive Date: 20070727
  Receipt Date: 20070718
  Transmission Date: 20080115
  Serious: Yes (Hospitalization)
  Sender: FDA-Public Use
  Company Number: US-MERCK-0707USA03750

PATIENT
  Age: 58 Year
  Sex: Male

DRUGS (18)
  1. PRINIVIL [Suspect]
     Route: 048
  2. ADVAIR DISKUS 100/50 [Concomitant]
  3. COREG [Concomitant]
     Route: 048
  4. LASIX [Concomitant]
     Route: 048
  5. LASIX [Concomitant]
     Route: 048
  6. VYTORIN [Concomitant]
     Route: 048
  7. PLAVIX [Concomitant]
     Route: 065
  8. TRICOR [Concomitant]
     Route: 065
  9. ACTOS [Concomitant]
     Route: 065
  10. HUMULIN N [Concomitant]
     Route: 065
  11. HUMULIN N [Concomitant]
     Route: 065
  12. HUMULIN 70/30 [Concomitant]
     Route: 065
  13. HUMULIN 70/30 [Concomitant]
     Route: 065
  14. PERCOCET [Concomitant]
     Indication: BACK PAIN
     Route: 065
  15. ECOTRIN [Concomitant]
     Route: 065
  16. NITROGLYCERIN [Concomitant]
     Route: 065
  17. CHONDROITIN SULFATE SODIUM AND GLUCOSAMINE SULFATE [Concomitant]
     Route: 048
  18. OMEGA-3 MARINE TRIGLYCERIDES [Concomitant]
     Route: 048

REACTIONS (8)
  - CARDIAC FAILURE CONGESTIVE [None]
  - DIABETES MELLITUS [None]
  - HYPERKALAEMIA [None]
  - LEFT VENTRICULAR DYSFUNCTION [None]
  - VENTRICULAR ARRHYTHMIA [None]
  - VENTRICULAR EXTRASYSTOLES [None]
  - VENTRICULAR FIBRILLATION [None]
  - VENTRICULAR TACHYCARDIA [None]
